FAERS Safety Report 9455348 (Version 2)
Quarter: 2013Q3

REPORT INFORMATION
  Report Type: Spontaneous
  Country: JP (occurrence: JP)
  Receive Date: 20130813
  Receipt Date: 20130912
  Transmission Date: 20140515
  Serious: Yes (Hospitalization)
  Sender: FDA-Public Use
  Company Number: PHHY2013JP085877

PATIENT
  Age: 75 Year
  Sex: Female

DRUGS (1)
  1. EXELON PATCH [Suspect]
     Indication: DEMENTIA ALZHEIMER^S TYPE
     Dosage: 9 MG, DAILY
     Route: 062
     Dates: start: 201210, end: 201211

REACTIONS (4)
  - Cerebral infarction [Unknown]
  - Fall [Unknown]
  - Convulsion [Recovered/Resolved]
  - Hypoaesthesia [Unknown]
